FAERS Safety Report 7981175-4 (Version None)
Quarter: 2011Q4

REPORT INFORMATION
  Report Type: 
  Country: None (occurrence: None)
  Receive Date: 20111212
  Receipt Date: 20111130
  Transmission Date: 20120403
  Serious: Yes (Hospitalization)
  Sender: FDA-Public Use
  Company Number: 2011SP055978

PATIENT
  Age: 68 Year
  Sex: Female

DRUGS (9)
  1. NEUPOGEN [Concomitant]
  2. SINOPRIL [Concomitant]
  3. RIBAVIRIN [Suspect]
     Indication: HEPATITIS C
     Dosage: 1000 MG; PO
     Route: 048
     Dates: start: 20110915, end: 20111129
  4. RECORMON [Concomitant]
  5. VASTEROL [Concomitant]
  6. BOCEPREVIR (SCH-503034) [Suspect]
     Indication: HEPATITIS C
     Dosage: 2400 MG;PO
     Route: 048
     Dates: start: 20111013, end: 20111129
  7. PEG-INTRON [Suspect]
     Indication: HEPATITIS C
     Dosage: 100 MCG; SC
     Route: 058
     Dates: start: 20110915
  8. BISOPROLOL FUMARATE [Concomitant]
  9. ASPIRIN [Concomitant]

REACTIONS (4)
  - CONFUSIONAL STATE [None]
  - URINARY TRACT INFECTION [None]
  - NEUTROPENIC SEPSIS [None]
  - HAEMOGLOBIN DECREASED [None]
